FAERS Safety Report 6269711-X (Version None)
Quarter: 2009Q3

REPORT INFORMATION
  Report Type: 
  Country: None (occurrence: None)
  Receive Date: 20090716
  Receipt Date: 20090708
  Transmission Date: 20100115
  Serious: Yes (Hospitalization)
  Sender: FDA-Public Use
  Company Number: US-ELI_LILLY_AND_COMPANY-US200907001688

PATIENT
  Sex: Male
  Weight: 71.202 kg

DRUGS (17)
  1. PEMETREXED [Suspect]
     Indication: NON-SMALL CELL LUNG CANCER STAGE IV
     Dosage: 500 MG/M2, OTHER
     Route: 042
     Dates: start: 20090427
  2. CARBOPLATIN [Suspect]
     Indication: NON-SMALL CELL LUNG CANCER STAGE IV
     Dosage: 6 D/F, OTHER
     Route: 042
     Dates: start: 20090427
  3. BEVACIZUMAB [Suspect]
     Indication: NON-SMALL CELL LUNG CANCER STAGE IV
     Dosage: 15 MG/KG, OTHER
     Route: 042
     Dates: start: 20090427
  4. PEPCID [Concomitant]
     Dosage: UNK, UNK
     Route: 048
  5. NORCO [Concomitant]
  6. CELEXA [Concomitant]
     Dosage: 1 D/F, DAILY (1/D)
     Route: 048
  7. REGLAN [Concomitant]
     Dosage: 1 D/F, 4/D
     Route: 048
  8. DECADRON [Concomitant]
     Route: 048
  9. COMPAZINE /00013302/ [Concomitant]
     Dosage: 1 D/F, AS NEEDED
     Route: 048
  10. FOLIC ACID [Concomitant]
     Dosage: 1 D/F, DAILY (1/D)
     Route: 048
  11. MAGNESIUM OXIDE [Concomitant]
     Dosage: 1 D/F, DAILY (1/D)
     Route: 048
  12. CALCIUM [Concomitant]
     Dosage: 1 D/F, DAILY (1/D)
     Route: 048
  13. AMBIEN [Concomitant]
     Dosage: 1 D/F, DAILY (1/D)
     Route: 048
  14. VITAMINS [Concomitant]
  15. MEGACE [Concomitant]
     Dosage: 1 D/F, DAILY (1/D)
     Route: 048
  16. ZOMETA [Concomitant]
  17. ARANESP [Concomitant]
     Indication: ANAEMIA

REACTIONS (2)
  - ANAEMIA [None]
  - MENTAL STATUS CHANGES [None]
